FAERS Safety Report 6918877-4 (Version None)
Quarter: 2010Q3

REPORT INFORMATION
  Report Type: 
  Country: None (occurrence: None)
  Receive Date: 20100723
  Receipt Date: 20100415
  Transmission Date: 20110219
  Serious: Yes (Other)
  Sender: FDA-Public Use
  Company Number: 2010048678

PATIENT
  Age: 28 Year
  Sex: Female
  Weight: 52.2 kg

DRUGS (3)
  1. DEPO-MEDROL [Suspect]
     Indication: ABDOMINAL PAIN
     Dates: start: 20100301
  2. DEPO-MEDROL [Suspect]
     Indication: NERVE INJURY
     Dates: start: 20100301
  3. LORTAB [Concomitant]

REACTIONS (6)
  - ASTHENIA [None]
  - BLOOD PRESSURE INCREASED [None]
  - FATIGUE [None]
  - INJECTION SITE SWELLING [None]
  - NAUSEA [None]
  - VOMITING [None]
